FAERS Safety Report 14409154 (Version 1)
Quarter: 2018Q1

REPORT INFORMATION
  Report Type: Spontaneous
  Country: US (occurrence: US)
  Receive Date: 20180119
  Receipt Date: 20180119
  Transmission Date: 20180509
  Serious: No
  Sender: FDA-Public Use
  Company Number: US-BIOGEN-2015BI052801

PATIENT
  Age: 31 Year
  Sex: Male

DRUGS (1)
  1. PLEGRIDY [Suspect]
     Active Substance: PEGINTERFERON BETA-1A
     Indication: MULTIPLE SCLEROSIS
     Route: 058
     Dates: start: 20150320

REACTIONS (6)
  - Injection site reaction [Recovered/Resolved]
  - Headache [Recovered/Resolved]
  - Injection site pruritus [Recovered/Resolved]
  - Nasopharyngitis [Unknown]
  - Injection site erythema [Recovered/Resolved]
  - Nausea [Recovered/Resolved]

NARRATIVE: CASE EVENT DATE: 20150320
